FAERS Safety Report 7267673-X (Version None)
Quarter: 2011Q1

REPORT INFORMATION
  Report Type: 
  Country: None (occurrence: None)
  Receive Date: 20110201
  Receipt Date: 20110125
  Transmission Date: 20110831
  Serious: Yes (Death, Hospitalization)
  Sender: FDA-Public Use
  Company Number: US-ROCHE-743882

PATIENT
  Sex: Female
  Weight: 82.7 kg

DRUGS (24)
  1. CPT-11 [Suspect]
     Dosage: CYCLE 2; PATIENT WITHDRAWN FROM STUDY.
     Route: 042
     Dates: start: 20101208, end: 20110103
  2. SIMVASTATIN [Concomitant]
     Route: 048
  3. XANAX [Concomitant]
     Dosage: FREQUENCY: TID PRN.
  4. MULTI-VITAMIN [Concomitant]
  5. VITAMIN B-12 [Concomitant]
     Dosage: TDD: 1000 U.
     Route: 048
  6. DECADRON [Concomitant]
     Route: 048
  7. BEVACIZUMAB [Suspect]
     Indication: GLIOBLASTOMA
     Route: 042
     Dates: start: 20101104
  8. VALSARTAN [Concomitant]
  9. BISOPROLOL [Concomitant]
     Route: 048
  10. VALTURNA [Concomitant]
     Dosage: DOSE: 150/160MG
     Route: 048
  11. BEVACIZUMAB [Suspect]
     Dosage: CYCLE 2; PATIENT WITHDRAWN FROM STUDY.
     Route: 042
     Dates: start: 20101208, end: 20110103
  12. TEMODAR [Suspect]
     Indication: GLIOBLASTOMA
     Route: 048
     Dates: start: 20101104, end: 20101108
  13. ALISKIREN [Concomitant]
     Dosage: TDD: 0.5 TAB DAILY
  14. BISOPROLOL [Concomitant]
     Route: 048
  15. LACTOBACILLUS [Concomitant]
     Route: 048
  16. CALCIUM SUPPLEMENT [Concomitant]
     Dosage: ONCE DAILY
  17. OMEPRAZOLE [Concomitant]
  18. CPT-11 [Suspect]
     Indication: GLIOBLASTOMA
     Route: 042
     Dates: start: 20101104
  19. LEVAQUIN [Suspect]
     Dosage: FOR 10 DAYS.
     Route: 048
     Dates: start: 20110110
  20. HYDROCHLOROTHIAZIDE [Concomitant]
  21. TEMODAR [Suspect]
     Dosage: CYCLE 2; PATIENT WITHDRAWN FROM STUDY.
     Route: 048
     Dates: start: 20101208, end: 20110103
  22. COLACE [Concomitant]
  23. KEPPRA [Concomitant]
  24. TEMAZEPAM [Concomitant]
     Route: 048

REACTIONS (5)
  - DIARRHOEA [None]
  - HYPONATRAEMIA [None]
  - DEATH [None]
  - INFECTION [None]
  - STEVENS-JOHNSON SYNDROME [None]
